FAERS Safety Report 8762491 (Version 1)
Quarter: 2012Q4

REPORT INFORMATION
  Report Type: 
  Country: US (occurrence: US)
  Receive Date: 20120828
  Receipt Date: 20120828
  Transmission Date: 20130627
  Serious: No
  Sender: FDA-Public Use
  Company Number: US-PFIZER INC-2012208658

PATIENT
  Age: 57 Year
  Sex: Male
  Weight: 76.19 kg

DRUGS (3)
  1. ADVIL [Suspect]
     Indication: BACK PAIN
     Dosage: 3 tablets of 200mg two times a day
     Route: 048
  2. ADVIL [Suspect]
     Dosage: 2 tablets of 200mg two times a day
     Route: 048
     Dates: start: 201208, end: 20120824
  3. BENICAR [Concomitant]
     Indication: HYPERTENSION
     Dosage: 20 mg, daily
     Dates: start: 1995

REACTIONS (2)
  - Heart rate increased [Recovered/Resolved]
  - Heart rate irregular [Recovered/Resolved]
